FAERS Safety Report 15788469 (Version 1)
Quarter: 2019Q1

REPORT INFORMATION
  Report Type: Spontaneous
  Country: US (occurrence: US)
  Receive Date: 20190104
  Receipt Date: 20190104
  Transmission Date: 20190417
  Serious: No
  Sender: FDA-Public Use
  Company Number: US-BIOGEN-2018BI00643447

PATIENT
  Sex: Female

DRUGS (3)
  1. TECFIDERA [Suspect]
     Active Substance: DIMETHYL FUMARATE
     Dosage: MAINTENANCE DOSE
     Route: 048
     Dates: start: 20181005
  2. TECFIDERA [Suspect]
     Active Substance: DIMETHYL FUMARATE
     Indication: MULTIPLE SCLEROSIS
     Dosage: STARTING DOSE
     Route: 048
     Dates: start: 20181007, end: 20181012
  3. CHANTIX [Concomitant]
     Active Substance: VARENICLINE TARTRATE
     Route: 065

REACTIONS (10)
  - Rash vesicular [Unknown]
  - Erythema [Unknown]
  - Abdominal discomfort [Unknown]
  - Headache [Not Recovered/Not Resolved]
  - Burning sensation [Not Recovered/Not Resolved]
  - Memory impairment [Unknown]
  - Urticaria [Recovered/Resolved]
  - Blister [Unknown]
  - Formication [Unknown]
  - Product dose omission [Unknown]
